FAERS Safety Report 25499552 (Version 1)
Quarter: 2025Q3

REPORT INFORMATION
  Report Type: Spontaneous
  Country: US (occurrence: US)
  Receive Date: 20250701
  Receipt Date: 20250701
  Transmission Date: 20251021
  Serious: No
  Sender: ELI LILLY AND COMPANY
  Company Number: US-ELI_LILLY_AND_COMPANY-US202506025031

PATIENT
  Age: 53 Year
  Sex: Female

DRUGS (5)
  1. ZEPBOUND [Suspect]
     Active Substance: TIRZEPATIDE
     Indication: Insulin resistance
     Route: 065
  2. ZEPBOUND [Suspect]
     Active Substance: TIRZEPATIDE
     Indication: Insulin resistance
     Route: 065
     Dates: start: 20250408
  3. ZEPBOUND [Suspect]
     Active Substance: TIRZEPATIDE
     Indication: Insulin resistance
     Route: 065
     Dates: start: 20250408
  4. ZEPBOUND [Suspect]
     Active Substance: TIRZEPATIDE
     Indication: Insulin resistance
     Route: 065
     Dates: start: 20250408
  5. ZEPBOUND [Suspect]
     Active Substance: TIRZEPATIDE
     Indication: Insulin resistance
     Route: 065
     Dates: start: 20250408

REACTIONS (2)
  - Off label use [Unknown]
  - Nausea [Unknown]
